FAERS Safety Report 21346273 (Version 6)
Quarter: 2022Q4

REPORT INFORMATION
  Report Type: Report from Study
  Country: US (occurrence: US)
  Receive Date: 20220917
  Receipt Date: 20221129
  Transmission Date: 20230113
  Serious: Yes (Other)
  Sender: FDA-Public Use
  Company Number: US-TAKEDA-2022TUS060212

PATIENT
  Age: 65 Year
  Sex: Female
  Weight: 71 kg

DRUGS (34)
  1. HUMAN IMMUNOGLOBULIN G [Suspect]
     Active Substance: HUMAN IMMUNOGLOBULIN G
     Indication: Multiple sclerosis
     Dosage: 400 MILLIGRAM/KILOGRAM
     Route: 042
     Dates: start: 20220610
  2. DIPHENHYDRAMINE [Concomitant]
     Active Substance: DIPHENHYDRAMINE
  3. ONDANSETRON HCL [Concomitant]
     Active Substance: ONDANSETRON HYDROCHLORIDE
  4. LEVOTHYROXINE SODIUM [Concomitant]
     Active Substance: LEVOTHYROXINE SODIUM
  5. HYDROXYZINE HYDROCHLORIDE [Concomitant]
     Active Substance: HYDROXYZINE HYDROCHLORIDE
  6. SODIUM CHLORIDE [Concomitant]
     Active Substance: SODIUM CHLORIDE
  7. EPINEPHRINE [Concomitant]
     Active Substance: EPINEPHRINE
  8. DANTROLENE SODIUM [Concomitant]
     Active Substance: DANTROLENE SODIUM
  9. BIOTIN [Concomitant]
     Active Substance: BIOTIN
  10. DULOXETINE HYDROCHLORIDE [Concomitant]
     Active Substance: DULOXETINE HYDROCHLORIDE
  11. LISINOPRIL [Concomitant]
     Active Substance: LISINOPRIL
  12. HYDROXYCHLOROQUINE SULFATE [Concomitant]
     Active Substance: HYDROXYCHLOROQUINE SULFATE
  13. METAXALONE [Concomitant]
     Active Substance: METAXALONE
  14. PREDNISONE [Concomitant]
     Active Substance: PREDNISONE
  15. AMBIEN CR [Concomitant]
     Active Substance: ZOLPIDEM TARTRATE
  16. QUETIAPINE FUMARATE [Concomitant]
     Active Substance: QUETIAPINE FUMARATE
  17. BUPROPION HYDROCHLORIDE [Concomitant]
     Active Substance: BUPROPION HYDROCHLORIDE
  18. ACETAMINOPHEN [Concomitant]
     Active Substance: ACETAMINOPHEN
  19. LORATADINE [Concomitant]
     Active Substance: LORATADINE
  20. LAMOTRIGINE [Concomitant]
     Active Substance: LAMOTRIGINE
  21. GABAPENTIN [Concomitant]
     Active Substance: GABAPENTIN
  22. SODIUM CHLORIDE [Concomitant]
     Active Substance: SODIUM CHLORIDE
  23. HEPARIN [Concomitant]
     Active Substance: HEPARIN SODIUM
  24. VITAMIN C [Concomitant]
     Active Substance: ASCORBIC ACID
  25. LIDOCAINE [Concomitant]
     Active Substance: LIDOCAINE
  26. VITAMIN D [Concomitant]
     Active Substance: VITAMIN D NOS
  27. DIAZEPAM [Concomitant]
     Active Substance: DIAZEPAM
  28. LEVOTHYROXINE [Concomitant]
     Active Substance: LEVOTHYROXINE
  29. VITAMIN D2 [Concomitant]
     Active Substance: ERGOCALCIFEROL
  30. CANNABIS SATIVA SUBSP. INDICA TOP [Concomitant]
     Active Substance: CANNABIS SATIVA SUBSP. INDICA TOP
  31. EUTHYROX [Concomitant]
     Active Substance: LEVOTHYROXINE SODIUM
  32. LEXAPRO [Concomitant]
     Active Substance: ESCITALOPRAM OXALATE
  33. LEVOTHYROXINE [Concomitant]
     Active Substance: LEVOTHYROXINE
  34. BACLOFEN [Concomitant]
     Active Substance: BACLOFEN

REACTIONS (9)
  - Psoriatic arthropathy [Unknown]
  - Venous injury [Unknown]
  - Dactylitis [Unknown]
  - Body temperature fluctuation [Unknown]
  - Depressed mood [Unknown]
  - Headache [Unknown]
  - Muscle spasms [Unknown]
  - Body temperature abnormal [Unknown]
  - Off label use [Unknown]

NARRATIVE: CASE EVENT DATE: 20220610
